FAERS Safety Report 10488096 (Version 1)
Quarter: 2020Q3

REPORT INFORMATION
  Report Type: Report from Study
  Country: DE (occurrence: DE)
  Receive Date: 20141002
  Receipt Date: 20141002
  Transmission Date: 20201104
  Serious: Yes (Hospitalization, Other)
  Sender: FDA-Public Use
  Company Number: PHHY2014DE125904

PATIENT
  Age: 65 Year
  Sex: Male

DRUGS (18)
  1. 5?FLUOROURACIL [Suspect]
     Active Substance: FLUOROURACIL
     Indication: ADENOCARCINOMA GASTRIC
     Dosage: 1 DF, QW2
     Route: 040
     Dates: start: 20140528
  2. PANTOZOL [Concomitant]
     Active Substance: PANTOPRAZOLE SODIUM
     Dosage: 40 MG, UNK
     Route: 048
  3. ALLOPURINOL. [Concomitant]
     Active Substance: ALLOPURINOL
     Dosage: 300 MG, UNK
     Route: 048
  4. SOLU DECORTIN H [Concomitant]
     Active Substance: PREDNISOLONE SODIUM SUCCINATE
     Indication: PREMEDICATION
     Dosage: 100 MG, UNK
     Route: 042
  5. ONDANSETRON [Concomitant]
     Active Substance: ONDANSETRON
     Indication: PREMEDICATION
     Dosage: PRIOR TO CHEMOTHERAPY ON DAY 1 EVERY CYCLE
     Route: 042
     Dates: start: 20140528
  6. EMEND [Concomitant]
     Active Substance: APREPITANT
     Indication: PROPHYLAXIS OF NAUSEA AND VOMITING
     Dosage: PROPHYLAXIS OF NAUSEA DAY 1 OF CHEMOTHERAPY
     Route: 048
     Dates: start: 20140528
  7. RANITIC [Concomitant]
     Active Substance: RANITIDINE HYDROCHLORIDE
     Indication: PREMEDICATION
     Dosage: PRIOR TO CHEMOTHERAPY ON DAY 1 EVERY CYCLE
     Route: 042
     Dates: start: 20140528
  8. TOREM [Concomitant]
     Active Substance: TORSEMIDE
     Indication: OEDEMA PERIPHERAL
     Dosage: 10 MG, UNK
     Dates: start: 20140603
  9. EMEND [Concomitant]
     Active Substance: APREPITANT
     Dosage: PROPHYLAXIS OF NAUSEA DAY 2?3 OF CHEMOTHERAPY
     Route: 048
     Dates: start: 20140528
  10. RAMIPRIL. [Concomitant]
     Active Substance: RAMIPRIL
     Indication: HYPERTENSION
     Route: 048
  11. NOVAMINSULFON [Concomitant]
     Active Substance: METAMIZOLE
     Indication: PAIN
     Dosage: 40 GTT, UNK
     Route: 048
     Dates: start: 20140603
  12. FENISTIL [Concomitant]
     Active Substance: DIMETHINDENE
     Indication: PREMEDICATION
     Dosage: PRIOR TO CHEMOTHERAPY ON DAY 1 EVERY CYCLE
     Route: 042
     Dates: start: 20140709
  13. OXALIPLATIN. [Suspect]
     Active Substance: OXALIPLATIN
     Indication: ADENOCARCINOMA GASTRIC
     Dosage: 1 DF, QW2
     Route: 042
     Dates: start: 20140528
  14. FOLINIC ACID [Suspect]
     Active Substance: LEUCOVORIN
     Indication: ADENOCARCINOMA GASTRIC
     Dosage: 1 DF, QW2
     Route: 042
     Dates: start: 20140528
  15. SIMVAHEXAL [Concomitant]
     Active Substance: SIMVASTATIN
     Route: 048
  16. ASPIRIN. [Concomitant]
     Active Substance: ASPIRIN
     Route: 048
  17. 5?FLUOROURACIL [Suspect]
     Active Substance: FLUOROURACIL
     Dosage: 1 DF, QW2
     Route: 041
     Dates: start: 20140611
  18. IPATASERTIB. [Suspect]
     Active Substance: IPATASERTIB
     Indication: ADENOCARCINOMA GASTRIC
     Route: 048
     Dates: start: 20140528

REACTIONS (1)
  - Bursitis [Not Recovered/Not Resolved]

NARRATIVE: CASE EVENT DATE: 20140917
